FAERS Safety Report 6978568-0 (Version None)
Quarter: 2010Q3

REPORT INFORMATION
  Report Type: 
  Country: None (occurrence: None)
  Receive Date: 20100913
  Receipt Date: 20100908
  Transmission Date: 20110219
  Serious: Yes (Hospitalization)
  Sender: FDA-Public Use
  Company Number: JP-SANOFI-AVENTIS-2010SA047693

PATIENT
  Age: 78 Year
  Sex: Male

DRUGS (1)
  1. AMARYL [Suspect]
     Route: 048

REACTIONS (1)
  - ECZEMA [None]
